FAERS Safety Report 13459793 (Version 2)
Quarter: 2017Q2

REPORT INFORMATION
  Report Type: Report from Study
  Country: BR (occurrence: BR)
  Receive Date: 20170420
  Receipt Date: 20170524
  Transmission Date: 20170830
  Serious: Yes (Other)
  Sender: FDA-Public Use
  Company Number: BR-UCBSA-2017014947

PATIENT
  Sex: Female
  Weight: 52 kg

DRUGS (3)
  1. BENZETACIL (BENZATHINE BENZYLPENICILLIN) [Concomitant]
     Active Substance: PENICILLIN G BENZATHINE
     Indication: PHARYNGITIS
     Dosage: UNK
     Route: 030
     Dates: start: 201703, end: 201703
  2. ATENOLOL. [Concomitant]
     Active Substance: ATENOLOL
     Indication: HYPERTENSION
     Dosage: 1 DF, ONCE DAILY (QD)
     Route: 048
     Dates: start: 1985
  3. CERTOLIZUMAB PEGOL [Suspect]
     Active Substance: CERTOLIZUMAB PEGOL
     Indication: RHEUMATOID ARTHRITIS
     Dosage: 200 MG, EV 15 DAYS
     Dates: start: 201701, end: 201704

REACTIONS (5)
  - Onychomadesis [Unknown]
  - Pruritus [Recovered/Resolved]
  - Skin fissures [Unknown]
  - Rash [Recovered/Resolved]
  - Pharyngitis [Unknown]

NARRATIVE: CASE EVENT DATE: 2017
